FAERS Safety Report 6434535-7 (Version None)
Quarter: 2009Q4

REPORT INFORMATION
  Report Type: 
  Country: None (occurrence: None)
  Receive Date: 20091110
  Receipt Date: 20091102
  Transmission Date: 20100525
  Serious: Yes (Other)
  Sender: FDA-Public Use
  Company Number: US-JNJFOC-20091101254

PATIENT
  Sex: Male

DRUGS (4)
  1. REMICADE [Suspect]
     Route: 042
     Dates: start: 20080801, end: 20090501
  2. REMICADE [Suspect]
     Route: 042
     Dates: start: 20080801, end: 20090501
  3. REMICADE [Suspect]
     Route: 042
     Dates: start: 20080801, end: 20090501
  4. REMICADE [Suspect]
     Indication: RHEUMATOID ARTHRITIS
     Route: 042
     Dates: start: 20080801, end: 20090501

REACTIONS (4)
  - HYPERHIDROSIS [None]
  - INFUSION RELATED REACTION [None]
  - LOSS OF CONSCIOUSNESS [None]
  - PRURITUS [None]
